FAERS Safety Report 9103657 (Version 2)
Quarter: 2013Q1

REPORT INFORMATION
  Report Type: Spontaneous
  Country: JP (occurrence: JP)
  Receive Date: 20130219
  Receipt Date: 20130305
  Transmission Date: 20140127
  Serious: Yes (Hospitalization, Other)
  Sender: FDA-Public Use
  Company Number: JP-PFIZER INC-2013024072

PATIENT
  Age: 57 Year
  Sex: Female

DRUGS (3)
  1. CELECOX [Suspect]
     Dosage: 100 MG, UNK
     Route: 048
     Dates: start: 20121009, end: 20121015
  2. PODONIN S [Concomitant]
     Dosage: UNK
     Dates: start: 20121009, end: 20121015
  3. SOLON [Concomitant]
     Dosage: UNK
     Route: 048
     Dates: start: 20121009, end: 20121015

REACTIONS (5)
  - Drug eruption [Recovered/Resolved]
  - Infection [Recovered/Resolved]
  - Aphagia [Recovered/Resolved]
  - Eyelid oedema [Unknown]
  - Sensory disturbance [Unknown]
